FAERS Safety Report 9130066 (Version 1)
Quarter: 2013Q1

REPORT INFORMATION
  Report Type: Spontaneous
  Country: US (occurrence: US)
  Receive Date: 20130228
  Receipt Date: 20130228
  Transmission Date: 20140127
  Serious: No
  Sender: FDA-Public Use
  Company Number: US-ABBOTT-12P-163-1021407-00

PATIENT
  Sex: Male
  Weight: 108.96 kg

DRUGS (5)
  1. ANDROGEL [Suspect]
     Indication: BLOOD TESTOSTERONE DECREASED
     Dosage: 1 PUMP
     Route: 061
     Dates: start: 201210
  2. ANDROGEL [Suspect]
     Dosage: 1 PUMP
     Route: 061
     Dates: start: 201206
  3. PAROXETINE [Concomitant]
     Indication: DEPRESSION
     Dosage: UNKNOWN
  4. PRILOSEC [Concomitant]
     Indication: GASTROOESOPHAGEAL REFLUX DISEASE
     Dosage: UNKNOWN
  5. GLIPIZIDE [Concomitant]
     Indication: DIABETES MELLITUS
     Dosage: UNKNOWN

REACTIONS (2)
  - Incorrect dose administered [Unknown]
  - Blood testosterone decreased [Recovered/Resolved]
